FAERS Safety Report 9095786 (Version 1)
Quarter: 2013Q1

REPORT INFORMATION
  Report Type: Spontaneous
  Country: US (occurrence: US)
  Receive Date: 20130219
  Receipt Date: 20130219
  Transmission Date: 20140127
  Serious: No
  Sender: FDA-Public Use
  Company Number: US-BAUSCH-BL-2012-001360

PATIENT
  Age: 30 Year
  Sex: Female

DRUGS (1)
  1. SULFACETAMIDE SODIUM [Suspect]
     Indication: CONJUNCTIVITIS
     Dosage: 1-2 DROPS IN EACH EYE, EVERY THREE HOURS
     Route: 047
     Dates: start: 20121009, end: 20121012

REACTIONS (1)
  - Medication residue present [Not Recovered/Not Resolved]
